FAERS Safety Report 10868203 (Version 1)
Quarter: 2015Q1

REPORT INFORMATION
  Report Type: Spontaneous
  Country: US (occurrence: US)
  Receive Date: 20150225
  Receipt Date: 20150225
  Transmission Date: 20150721
  Serious: Yes (Congenital Anomaly, Other)
  Sender: FDA-Public Use
  Company Number: US-GLAXOSMITHKLINE-US2015GSK025002

PATIENT
  Sex: Female

DRUGS (1)
  1. ZOFRAN [Suspect]
     Active Substance: ONDANSETRON HYDROCHLORIDE
     Indication: VOMITING IN PREGNANCY
     Dosage: UNK
     Route: 064

REACTIONS (9)
  - Syndactyly [Unknown]
  - Right ventricular hypertension [Unknown]
  - Deafness [Unknown]
  - Congenital inguinal hernia [Unknown]
  - Hypoplastic right heart syndrome [Unknown]
  - Atrial septal defect [Unknown]
  - Dysmorphism [Unknown]
  - Photophobia [Unknown]
  - Foetal exposure during pregnancy [Unknown]
